FAERS Safety Report 4443152-X (Version None)
Quarter: 2004Q3

REPORT INFORMATION
  Report Type: 
  Country: None (occurrence: None)
  Receive Date: 20040907
  Receipt Date: 20040907
  Transmission Date: 20050211
  Serious: Yes (Life-Threatening, Disabling)
  Sender: FDA-Public Use
  Company Number: None

PATIENT
  Age: 39 Year
  Sex: Female
  Weight: 77.1115 kg

DRUGS (1)
  1. VIOXX [Suspect]
     Indication: OSTEOARTHRITIS
     Dosage: 1/4 PILL ONCE A DAY ORAL
     Route: 048
     Dates: start: 20040519, end: 20040630

REACTIONS (18)
  - AGITATION [None]
  - ANOREXIA [None]
  - BED REST [None]
  - BLOOD PRESSURE INCREASED [None]
  - CHEST PAIN [None]
  - DIZZINESS [None]
  - DYSPEPSIA [None]
  - FEELING ABNORMAL [None]
  - HAEMOPTYSIS [None]
  - HAEMORRHAGE [None]
  - HYPOAESTHESIA [None]
  - IMPAIRED WORK ABILITY [None]
  - JOINT SWELLING [None]
  - LISTLESS [None]
  - PAIN [None]
  - PULMONARY OEDEMA [None]
  - RESPIRATION ABNORMAL [None]
  - WHEEZING [None]
